FAERS Safety Report 6943972-3 (Version None)
Quarter: 2010Q3

REPORT INFORMATION
  Report Type: 
  Country: None (occurrence: None)
  Receive Date: 20100826
  Receipt Date: 20100812
  Transmission Date: 20110219
  Serious: Yes (Hospitalization)
  Sender: FDA-Public Use
  Company Number: GB-GENENTECH-261792

PATIENT
  Sex: Male
  Weight: 84 kg

DRUGS (24)
  1. RITUXIMAB [Suspect]
     Indication: RHEUMATOID ARTHRITIS
     Dosage: FORM: INFUSION SOLUTION; DOSAGE: TAKEN ON DAY 1 AND DAY 15; DATE OF LAST DOSE: 17 JUNE 2004
     Route: 042
     Dates: start: 20010910, end: 20060802
  2. METHYLPREDNISOLONE [Suspect]
     Indication: RHEUMATOID ARTHRITIS
     Dosage: 100 MG, DAYS 1+15
     Route: 042
     Dates: start: 20010910, end: 20060802
  3. PREDNISONE [Suspect]
     Indication: RHEUMATOID ARTHRITIS
     Dosage: 30 MG, UNK
     Route: 048
     Dates: start: 20010910, end: 20060802
  4. METHOTREXATE [Suspect]
     Indication: RHEUMATOID ARTHRITIS
     Dosage: 17.5 MG, 1/WEEK
     Route: 048
     Dates: start: 20031015
  5. METHOTREXATE [Suspect]
     Dosage: 10 MG, 1/WEEK
     Route: 048
     Dates: start: 20050607
  6. LIQUIGEL (UNK INGREDIENTS) [Concomitant]
     Indication: PRODUCT USED FOR UNKNOWN INDICATION
     Dosage: UNK
     Dates: start: 20011130
  7. FOLIC ACID [Concomitant]
     Indication: PRODUCT USED FOR UNKNOWN INDICATION
     Dosage: 5 MG, UNK
     Dates: start: 20031016
  8. FOLIC ACID [Concomitant]
     Dosage: UNK
     Dates: start: 20050608
  9. RAMIPRIL [Concomitant]
     Indication: PRODUCT USED FOR UNKNOWN INDICATION
     Dosage: UNK
     Dates: start: 19960601
  10. AMLODIPINE [Concomitant]
     Indication: PRODUCT USED FOR UNKNOWN INDICATION
     Dosage: UNK
     Dates: start: 19960601
  11. ALFUZOSIN HYDROCHLORIDE [Concomitant]
     Indication: PRODUCT USED FOR UNKNOWN INDICATION
     Dosage: UNK
     Dates: start: 20000301
  12. METFORMIN HCL [Concomitant]
     Indication: PRODUCT USED FOR UNKNOWN INDICATION
     Dosage: UNK
     Dates: start: 20010910
  13. OMEPRAZOLE [Concomitant]
     Indication: PRODUCT USED FOR UNKNOWN INDICATION
     Dosage: TOTAL DAILY DOSE: 20
     Dates: start: 20030621
  14. PREDNISOLONE [Concomitant]
     Indication: PRODUCT USED FOR UNKNOWN INDICATION
     Dosage: UNK
     Dates: start: 20050304
  15. PREDNISOLONE [Concomitant]
     Dates: start: 20011011
  16. FYBOGEL (GREAT BRITAIN) [Concomitant]
     Indication: PRODUCT USED FOR UNKNOWN INDICATION
     Dosage: UNK
     Dates: start: 20051216
  17. PLANTAGO OVATA [Concomitant]
     Indication: PRODUCT USED FOR UNKNOWN INDICATION
  18. ACETAMINOPHEN [Concomitant]
     Indication: PRODUCT USED FOR UNKNOWN INDICATION
     Dosage: 1 G, UNK
     Dates: start: 20030523
  19. TRAMADOL HYDROCHLORIDE [Concomitant]
     Indication: PRODUCT USED FOR UNKNOWN INDICATION
     Dosage: 100 MG, UNK
     Dates: start: 20040902
  20. FINASTERIDE [Concomitant]
     Indication: PRODUCT USED FOR UNKNOWN INDICATION
     Dosage: UNK
     Dates: start: 20040701
  21. DICLOFENAC SODIUM [Concomitant]
     Indication: PRODUCT USED FOR UNKNOWN INDICATION
     Dosage: UNK
     Dates: start: 20030621
  22. HYPROMELLOSE EYE DROPS [Concomitant]
     Indication: PRODUCT USED FOR UNKNOWN INDICATION
     Dosage: UNK
     Dates: start: 20020104
  23. FYBOGEL [Concomitant]
     Dates: start: 20051216
  24. VISCOTEARS [Concomitant]
     Dosage: FREQUENCY: Q.I.D; DRUG REPORTED AS VISCOTEARS LIQUIGEL
     Dates: start: 20011130

REACTIONS (4)
  - CERVICAL MYELOPATHY [None]
  - LOWER RESPIRATORY TRACT INFECTION [None]
  - RADICULOPATHY [None]
  - RHEUMATOID ARTHRITIS [None]
